FAERS Safety Report 13571663 (Version 3)
Quarter: 2017Q3

REPORT INFORMATION
  Report Type: Spontaneous
  Country: US (occurrence: US)
  Receive Date: 20170523
  Receipt Date: 20170726
  Transmission Date: 20171127
  Serious: No
  Sender: FDA-Public Use
  Company Number: US-PFIZER INC-2017215395

PATIENT
  Age: 55 Year
  Sex: Female
  Weight: 76.19 kg

DRUGS (11)
  1. RESTASIS [Concomitant]
     Active Substance: CYCLOSPORINE
     Dosage: UNK, DAILY
  2. NALTREXONE [Concomitant]
     Active Substance: NALTREXONE
     Indication: ARTHRALGIA
  3. FLORA BALANCE L.R. [Concomitant]
     Dosage: 1 DF (15 BILLION LIVE ORGANISMS), TWICE A DAY
  4. LIVER PROTECT [Concomitant]
     Dosage: UNK, ONCE A DAY
  5. XELJANZ XR [Suspect]
     Active Substance: TOFACITINIB CITRATE
     Indication: RHEUMATOID ARTHRITIS
     Dosage: 11 MG, ONCE A DAY
     Route: 048
     Dates: start: 20170329, end: 20170602
  6. PREDNISONE. [Suspect]
     Active Substance: PREDNISONE
     Indication: PAIN
     Dosage: 10 MG, UNK
  7. LEVOTHYROXINE. [Concomitant]
     Active Substance: LEVOTHYROXINE
     Dosage: 100 UG, DAILY (QD)
  8. ASA [Concomitant]
     Active Substance: ASPIRIN
     Indication: FACTOR V LEIDEN MUTATION
     Dosage: 325 MG, UNK
  9. NALTREXONE [Concomitant]
     Active Substance: NALTREXONE
     Indication: MYALGIA
  10. ADVIL [Concomitant]
     Active Substance: IBUPROFEN
     Indication: PAIN
     Dosage: UNK, AS NEEDED
  11. NALTREXONE [Concomitant]
     Active Substance: NALTREXONE
     Indication: FATIGUE
     Dosage: 4.5 MG (LOW DOSE), DAILY

REACTIONS (7)
  - Flatulence [Recovering/Resolving]
  - Muscle tightness [Unknown]
  - Therapeutic response unexpected [Unknown]
  - Pain [Not Recovered/Not Resolved]
  - Energy increased [Unknown]
  - Condition aggravated [Not Recovered/Not Resolved]
  - Diarrhoea [Not Recovered/Not Resolved]

NARRATIVE: CASE EVENT DATE: 2017
